FAERS Safety Report 19934565 (Version 1)
Quarter: 2021Q4

REPORT INFORMATION
  Report Type: Spontaneous
  Country: US (occurrence: US)
  Receive Date: 20211008
  Receipt Date: 20211008
  Transmission Date: 20220303
  Serious: Yes (Other)
  Sender: FDA-Public Use
  Company Number: US-GSKCCFUS-CASE-01185860_AE-69425

PATIENT
  Age: 68 Year
  Sex: Female

DRUGS (4)
  1. SHINGRIX [Suspect]
     Active Substance: RECOMBINANT VARICELLA ZOSTER VIRUS (VZV) GLYCOPROTEIN E
     Indication: Prophylaxis
  2. SHINGRIX [Suspect]
     Active Substance: RECOMBINANT VARICELLA ZOSTER VIRUS (VZV) GLYCOPROTEIN E
     Indication: Prophylaxis
  3. ACYCLOVIR [Suspect]
     Active Substance: ACYCLOVIR
     Indication: Herpes zoster
  4. VALACYCLOVIR HYDROCHLORIDE [Suspect]
     Active Substance: VALACYCLOVIR HYDROCHLORIDE
     Indication: Prophylaxis

REACTIONS (13)
  - Vaccination failure [Unknown]
  - Neuropathy peripheral [Not Recovered/Not Resolved]
  - Herpes zoster [Not Recovered/Not Resolved]
  - Injection site pain [Recovered/Resolved]
  - Injection site pain [Recovered/Resolved]
  - Mobility decreased [Recovered/Resolved]
  - Mobility decreased [Recovered/Resolved]
  - Chest pain [Unknown]
  - Rash erythematous [Not Recovered/Not Resolved]
  - Headache [Unknown]
  - Neuralgia [Not Recovered/Not Resolved]
  - Burning sensation [Unknown]
  - Drug ineffective [Unknown]
